FAERS Safety Report 9095289 (Version 1)
Quarter: 2013Q1

REPORT INFORMATION
  Report Type: Report from Study
  Country: US (occurrence: US)
  Receive Date: 20130201
  Receipt Date: 20130201
  Transmission Date: 20140127
  Serious: No
  Sender: FDA-Public Use
  Company Number: US-VERTEX PHARMACEUTICALS INC.-2013-001413

PATIENT
  Age: 40 Year
  Sex: Male

DRUGS (2)
  1. VX-950 (TELAPREVIR) [Suspect]
     Indication: HEPATITIS C
     Dosage: 750 MG, TID
     Route: 048
     Dates: start: 20130125
  2. TYLENOL  8 HR TAB [Concomitant]
     Dosage: 650 MG, UNK

REACTIONS (2)
  - Bone pain [Unknown]
  - Nausea [Unknown]
